FAERS Safety Report 4966406-7 (Version None)
Quarter: 2006Q2

REPORT INFORMATION
  Report Type: 
  Country: None (occurrence: None)
  Receive Date: 20060407
  Receipt Date: 20050914
  Transmission Date: 20061013
  Serious: Yes (Hospitalization)
  Sender: FDA-Public Use
  Company Number: US-MERCK-0509USA01943

PATIENT
  Age: 54 Year
  Sex: Male
  Weight: 77 kg

DRUGS (13)
  1. VIOXX [Suspect]
     Indication: BACK PAIN
     Route: 048
     Dates: start: 20000101, end: 20040101
  2. ANALGESIC OR ANESTHETIC (UNSPECIFIED) [Concomitant]
     Indication: PAIN
     Route: 065
  3. LORTAB [Concomitant]
     Indication: PAIN
     Route: 048
  4. ELAVIL [Concomitant]
     Indication: SLEEP DISORDER
     Route: 048
  5. NEURONTIN [Concomitant]
     Route: 048
  6. ZANAFLEX [Concomitant]
     Indication: MUSCLE SPASMS
     Route: 048
  7. CARISOPRODOL [Concomitant]
     Indication: MUSCLE SPASMS
     Route: 048
  8. VICODIN [Concomitant]
     Route: 065
  9. AMITRIPTYLINE HYDROCHLORIDE [Concomitant]
     Route: 048
  10. MEDROL [Concomitant]
     Route: 065
  11. SKELAXIN [Concomitant]
     Route: 065
  12. CLARITIN [Concomitant]
     Route: 065
  13. [COMPOSITION UNSPECIFIED] [Concomitant]
     Route: 047

REACTIONS (23)
  - ANOREXIA [None]
  - ANXIETY [None]
  - BACK DISORDER [None]
  - BACK INJURY [None]
  - BACK PAIN [None]
  - BLADDER DISORDER [None]
  - BLOOD URINE PRESENT [None]
  - DEPRESSION [None]
  - FATIGUE [None]
  - HEADACHE [None]
  - HEART RATE INCREASED [None]
  - HEART RATE IRREGULAR [None]
  - HERNIA [None]
  - INSOMNIA [None]
  - INTERVERTEBRAL DISC PROTRUSION [None]
  - INTESTINAL FUNCTIONAL DISORDER [None]
  - KIDNEY INFECTION [None]
  - NERVOUSNESS [None]
  - PAIN [None]
  - PAIN IN EXTREMITY [None]
  - RADICULOPATHY [None]
  - SPINAL CORD DISORDER [None]
  - VISUAL DISTURBANCE [None]
